FAERS Safety Report 14949229 (Version 1)
Quarter: 2018Q2

REPORT INFORMATION
  Report Type: Spontaneous
  Country: IN (occurrence: IN)
  Receive Date: 20180529
  Receipt Date: 20180529
  Transmission Date: 20180711
  Serious: Yes (Hospitalization, Other)
  Sender: FDA-Public Use
  Company Number: IN-MYLANLABS-2018M1035005

PATIENT
  Sex: Female

DRUGS (1)
  1. BETAMETHASONE. [Suspect]
     Active Substance: BETAMETHASONE
     Indication: FOETAL GROWTH RESTRICTION
     Route: 064

REACTIONS (6)
  - Hypertrophic cardiomyopathy [Unknown]
  - Metabolic acidosis [Unknown]
  - Anuria [Unknown]
  - Foetal exposure during pregnancy [Recovered/Resolved]
  - Tumour lysis syndrome [Unknown]
  - Acute kidney injury [Unknown]
